FAERS Safety Report 5142304-3 (Version None)
Quarter: 2006Q4

REPORT INFORMATION
  Report Type: 
  Country: None (occurrence: None)
  Receive Date: 20061102
  Receipt Date: 20061024
  Transmission Date: 20070319
  Serious: Yes (Hospitalization)
  Sender: FDA-Public Use
  Company Number: 2006UW20500

PATIENT
  Age: 63 Year
  Sex: Female

DRUGS (13)
  1. ATACAND [Suspect]
     Indication: HYPERTENSION
     Route: 048
     Dates: start: 20030101
  2. ATACAND [Suspect]
     Route: 048
  3. NEXIUM [Concomitant]
     Route: 048
  4. ATACAND HCT [Concomitant]
     Indication: HYPERTENSION
     Route: 048
  5. LIPITOR [Concomitant]
     Indication: BLOOD CHOLESTEROL INCREASED
  6. POTASSIUM ACETATE [Concomitant]
  7. GLYBURIDE [Concomitant]
     Indication: DIABETES MELLITUS
  8. SYNTHROID [Concomitant]
     Indication: THYROID DISORDER
  9. ASPIRIN [Concomitant]
  10. ALTACE [Concomitant]
  11. NORVASC [Concomitant]
  12. CIPROFLOXACIN [Concomitant]
     Indication: INFECTION
     Dates: start: 20060801
  13. ANTI NAUSEA [Concomitant]
     Dates: start: 20060801

REACTIONS (5)
  - CONSTIPATION [None]
  - DIARRHOEA [None]
  - GASTROINTESTINAL HAEMORRHAGE [None]
  - NAUSEA [None]
  - WEIGHT DECREASED [None]
